FAERS Safety Report 16303203 (Version 1)
Quarter: 2019Q2

REPORT INFORMATION
  Report Type: Spontaneous
  Country: US (occurrence: US)
  Receive Date: 20190513
  Receipt Date: 20190513
  Transmission Date: 20190711
  Serious: Yes (Hospitalization)
  Sender: FDA-Public Use
  Company Number: US-ROCHE-2314263

PATIENT
  Sex: Male

DRUGS (13)
  1. COTELLIC [Suspect]
     Active Substance: COBIMETINIB
     Indication: METASTASES TO LIVER
     Route: 048
     Dates: start: 20170401
  2. COTELLIC [Suspect]
     Active Substance: COBIMETINIB
     Indication: CHOLANGIOCARCINOMA
  3. ELIQUIS [Concomitant]
     Active Substance: APIXABAN
     Indication: OFF LABEL USE
  4. ZELBORAF [Suspect]
     Active Substance: VEMURAFENIB
     Indication: CHOLANGIOCARCINOMA
  5. VITAMIN C [Concomitant]
     Active Substance: ASCORBIC ACID
     Indication: OFF LABEL USE
  6. COTELLIC [Suspect]
     Active Substance: COBIMETINIB
     Indication: OFF LABEL USE
  7. COLESTIPOL [Concomitant]
     Active Substance: COLESTIPOL
     Indication: OFF LABEL USE
  8. LIALDA [Concomitant]
     Active Substance: MESALAMINE
     Indication: OFF LABEL USE
  9. LOVENOX [Concomitant]
     Active Substance: ENOXAPARIN SODIUM
     Indication: OFF LABEL USE
  10. OMEPRAZOLE. [Concomitant]
     Active Substance: OMEPRAZOLE
     Indication: OFF LABEL USE
  11. ZELBORAF [Suspect]
     Active Substance: VEMURAFENIB
     Indication: METASTASES TO LIVER
     Route: 048
     Dates: start: 20170401
  12. ZELBORAF [Suspect]
     Active Substance: VEMURAFENIB
     Indication: OFF LABEL USE
  13. PREDNISONE. [Concomitant]
     Active Substance: PREDNISONE
     Indication: OFF LABEL USE

REACTIONS (3)
  - Off label use [Unknown]
  - Large intestinal ulcer haemorrhage [Unknown]
  - Intentional product use issue [Unknown]
